FAERS Safety Report 5558803-6 (Version None)
Quarter: 2007Q4

REPORT INFORMATION
  Report Type: 
  Country: None (occurrence: None)
  Receive Date: 20071214
  Receipt Date: 20071203
  Transmission Date: 20080405
  Serious: Yes (Other)
  Sender: FDA-Public Use
  Company Number: US-PFIZER INC-2007103226

PATIENT
  Sex: Female
  Weight: 67.272 kg

DRUGS (3)
  1. CHANTIX [Suspect]
     Indication: SMOKING CESSATION THERAPY
     Dates: start: 20071117, end: 20071127
  2. OMEPRAZOLE [Concomitant]
     Indication: DYSPEPSIA
  3. TYLENOL (CAPLET) [Concomitant]
     Dosage: FREQ:AS NEEDED

REACTIONS (8)
  - ABNORMAL DREAMS [None]
  - CHEST DISCOMFORT [None]
  - DYSPNOEA [None]
  - FEELING HOT [None]
  - HYPERHIDROSIS [None]
  - LOSS OF CONSCIOUSNESS [None]
  - RASH [None]
  - SOMNOLENCE [None]
